FAERS Safety Report 22277503 (Version 2)
Quarter: 2023Q2

REPORT INFORMATION
  Report Type: Report from Study
  Country: AU (occurrence: AU)
  Receive Date: 20230503
  Receipt Date: 20230605
  Transmission Date: 20230722
  Serious: Yes (Hospitalization, Other)
  Sender: FDA-Public Use
  Company Number: AU-JNJFOC-20230458234

PATIENT
  Age: 38 Year
  Sex: Female

DRUGS (10)
  1. SPRAVATO [Suspect]
     Active Substance: ESKETAMINE
     Indication: Depression
     Dates: start: 20211105, end: 2021
  2. SPRAVATO [Suspect]
     Active Substance: ESKETAMINE
     Dosage: DEC-2021 TO FEB-2022
  3. SPRAVATO [Suspect]
     Active Substance: ESKETAMINE
     Dosage: DEC-2021 TO FEB-2022
  4. VORTIOXETINE [Concomitant]
     Active Substance: VORTIOXETINE
     Dates: start: 20211108
  5. VORTIOXETINE [Concomitant]
     Active Substance: VORTIOXETINE
     Dates: start: 20211130
  6. VORTIOXETINE [Concomitant]
     Active Substance: VORTIOXETINE
     Dosage: ON ADMISSION 17-FEB-2022
     Dates: end: 20220220
  7. LAMOTRIGINE [Concomitant]
     Active Substance: LAMOTRIGINE
  8. QUETIAPINE [Concomitant]
     Active Substance: QUETIAPINE
  9. LISDEXAMFETAMINE [Concomitant]
     Active Substance: LISDEXAMFETAMINE
  10. PROPRANOLOL [Concomitant]
     Active Substance: PROPRANOLOL HYDROCHLORIDE

REACTIONS (4)
  - Suicide attempt [Unknown]
  - Mental impairment [Not Recovered/Not Resolved]
  - Suicidal ideation [Not Recovered/Not Resolved]
  - Mood altered [Not Recovered/Not Resolved]

NARRATIVE: CASE EVENT DATE: 20220101
